FAERS Safety Report 23504673 (Version 1)
Quarter: 2024Q1

REPORT INFORMATION
  Report Type: Other
  Country: CN (occurrence: None)
  Receive Date: 20240209
  Receipt Date: 20240209
  Transmission Date: 20240410
  Serious: Yes (Other)
  Sender: FDA-Public Use
  Company Number: CN-ROCHE-3504410

PATIENT
  Age: 47 Year
  Sex: Male

DRUGS (8)
  1. ATEZOLIZUMAB [Suspect]
     Active Substance: ATEZOLIZUMAB
     Indication: Small cell lung cancer extensive stage
     Dosage: 2 CYCLES OF TREATMENT
     Route: 042
  2. ATEZOLIZUMAB [Suspect]
     Active Substance: ATEZOLIZUMAB
     Dosage: 2 CYCLES OF TREATMENT
     Route: 042
  3. BEVACIZUMAB [Concomitant]
     Active Substance: BEVACIZUMAB
     Indication: Small cell lung cancer extensive stage
     Dosage: 2 CYCLES OF TREATMENT
     Route: 042
     Dates: start: 20210924
  4. BEVACIZUMAB [Concomitant]
     Active Substance: BEVACIZUMAB
     Dosage: 2 CYCLES OF TREATMENT
     Route: 042
     Dates: start: 20211015
  5. CARBOPLATIN [Concomitant]
     Active Substance: CARBOPLATIN
     Indication: Small cell lung cancer extensive stage
     Dosage: 2 CYCLES OF TREATMENT
     Route: 042
     Dates: start: 20210924
  6. CARBOPLATIN [Concomitant]
     Active Substance: CARBOPLATIN
     Dosage: 2 CYCLES OF TREATMENT
     Route: 042
     Dates: start: 20211015
  7. ETOPOSIDE [Concomitant]
     Active Substance: ETOPOSIDE
     Indication: Small cell lung cancer extensive stage
     Dosage: 2 CYCLES OF TREATMENT
     Route: 042
     Dates: start: 20210924
  8. ETOPOSIDE [Concomitant]
     Active Substance: ETOPOSIDE
     Dosage: 2 CYCLES OF TREATMENT
     Route: 042
     Dates: start: 20211015

REACTIONS (1)
  - Autoimmune retinopathy [Recovering/Resolving]

NARRATIVE: CASE EVENT DATE: 20210101
